FAERS Safety Report 8307843-2 (Version None)
Quarter: 2012Q2

REPORT INFORMATION
  Report Type: 
  Country: None (occurrence: None)
  Receive Date: 20120424
  Receipt Date: 20120409
  Transmission Date: 20120825
  Serious: Yes (Death, Hospitalization, Disabling, Other)
  Sender: FDA-Public Use
  Company Number: US-MYLANLABS-2009AC000232

PATIENT
  Age: 47 Year
  Sex: Male
  Weight: 82.56 kg

DRUGS (18)
  1. NITROGLYCERIN [Concomitant]
  2. ASPIRIN [Concomitant]
  3. PREVACID [Concomitant]
  4. NITROGLYCERIN [Concomitant]
  5. BENADRYL [Concomitant]
  6. DIGOXIN [Suspect]
     Route: 048
     Dates: start: 20030318, end: 20060502
  7. ZITHROMAX [Concomitant]
  8. PHENERGAN EXPECTORANT W/ CODEINE [Concomitant]
     Dosage: 102 TEASPOONS Q 4-6HRS
  9. BUPROPION HCL [Concomitant]
  10. COREG [Concomitant]
  11. SEPTRA [Concomitant]
  12. TENORMIN [Concomitant]
  13. ZOLOFT [Concomitant]
  14. BUSPAR [Concomitant]
  15. COZAAR [Concomitant]
  16. ATENOLOL [Concomitant]
  17. PROTONIX [Concomitant]
  18. HYDROCHLOROTHIAZIDE [Concomitant]

REACTIONS (42)
  - ILL-DEFINED DISORDER [None]
  - DEATH [None]
  - VIITH NERVE PARALYSIS [None]
  - CHEST DISCOMFORT [None]
  - NEUROLOGICAL SYMPTOM [None]
  - HEART RATE IRREGULAR [None]
  - ASTHENIA [None]
  - OEDEMA PERIPHERAL [None]
  - PARAESTHESIA [None]
  - INJURY [None]
  - CARDIOMYOPATHY [None]
  - CHEST PAIN [None]
  - STROKE IN EVOLUTION [None]
  - DEPRESSION [None]
  - EXTRASYSTOLES [None]
  - GYNAECOMASTIA [None]
  - TELANGIECTASIA [None]
  - APHAGIA [None]
  - MONOPLEGIA [None]
  - CARDIAC MURMUR [None]
  - ATRIAL FIBRILLATION [None]
  - NERVOUSNESS [None]
  - HEMIPARESIS [None]
  - ANXIETY DISORDER [None]
  - CARDIOMEGALY [None]
  - HYPOAESTHESIA [None]
  - RESPIRATORY TRACT CONGESTION [None]
  - TOBACCO USER [None]
  - ANGINA PECTORIS [None]
  - ALCOHOL ABUSE [None]
  - DYSPNOEA EXERTIONAL [None]
  - OBESITY [None]
  - ECONOMIC PROBLEM [None]
  - HEART RATE INCREASED [None]
  - UPPER RESPIRATORY TRACT INFECTION [None]
  - CEREBROVASCULAR ACCIDENT [None]
  - CORONARY ARTERY DISEASE [None]
  - DIZZINESS [None]
  - PALPITATIONS [None]
  - MITRAL VALVE INCOMPETENCE [None]
  - COUGH [None]
  - FATIGUE [None]
